FAERS Safety Report 8473913-1 (Version None)
Quarter: 2012Q2

REPORT INFORMATION
  Report Type: 
  Country: None (occurrence: None)
  Receive Date: 20120628
  Receipt Date: 20120302
  Transmission Date: 20120825
  Serious: Yes (Other)
  Sender: FDA-Public Use
  Company Number: US-MYLANLABS-2012S1002227

PATIENT
  Age: 54 Year
  Sex: Male
  Weight: 76.2 kg

DRUGS (11)
  1. PROPRANOLOL [Concomitant]
  2. ATORVASTATIN [Concomitant]
  3. CLOZAPINE [Suspect]
     Route: 048
     Dates: start: 20120131
  4. MULTI-VITAMIN [Concomitant]
  5. GEMFIBROZIL [Concomitant]
  6. HALDOL [Concomitant]
  7. RISPERIDONE [Concomitant]
  8. CLOZAPINE [Suspect]
     Route: 048
     Dates: start: 20120119, end: 20120130
  9. DIVALPROEX SODIUM EXTENDED RELEASE [Concomitant]
  10. CLOZAPINE [Suspect]
     Indication: PSYCHOTIC DISORDER
     Route: 048
     Dates: start: 20110601, end: 20120118
  11. FERROUS SULFATE TAB [Concomitant]

REACTIONS (1)
  - CONVULSION [None]
